FAERS Safety Report 4711036-5 (Version None)
Quarter: 2005Q2

REPORT INFORMATION
  Report Type: 
  Country: None (occurrence: None)
  Receive Date: 20050629
  Receipt Date: 20050310
  Transmission Date: 20051028
  Serious: No
  Sender: FDA-Public Use
  Company Number: 05P-163-0293567-00

PATIENT
  Age: 69 Year
  Sex: Female
  Weight: 73.4827 kg

DRUGS (11)
  1. HUMIRA [Suspect]
     Indication: RHEUMATOID ARTHRITIS
     Dosage: 40 MG, 1 IN 2 WK, SUBCUTANEOUS
     Route: 058
     Dates: start: 20041201
  2. LEFLUNOMIDE [Concomitant]
  3. GLIMEPIRIDE [Concomitant]
  4. ROSIGLITAZONE MALEATE [Concomitant]
  5. FOSINOPRIL SODIUM [Concomitant]
  6. POTASSIUM CHLORIDE [Concomitant]
  7. HYDROCHLOROTHIAZIDE [Concomitant]
  8. PREDNISONE TAB [Concomitant]
  9. CHOLINE SALICYLATE [Concomitant]
  10. THIAMINE HCL [Concomitant]
  11. PYRIDOXINE HYDROCHLORIDE [Concomitant]

REACTIONS (1)
  - INFLUENZA [None]
